FAERS Safety Report 8970738 (Version 1)
Quarter: 2012Q4

REPORT INFORMATION
  Report Type: 
  Country: US (occurrence: US)
  Receive Date: 20121218
  Receipt Date: 20121218
  Transmission Date: 20130627
  Serious: No
  Sender: FDA-Public Use
  Company Number: US-GLAXOSMITHKLINE-A0998683A

PATIENT
  Age: 53 Year
  Sex: Male

DRUGS (1)
  1. NICORETTE NICOTINE POLACRILEX LOZENGE, 2MG [Suspect]
     Indication: EX-TOBACCO USER
     Dates: start: 20121019, end: 20121023

REACTIONS (4)
  - Oral herpes [Not Recovered/Not Resolved]
  - Lip swelling [Not Recovered/Not Resolved]
  - Lip pain [Not Recovered/Not Resolved]
  - Hypoaesthesia oral [Not Recovered/Not Resolved]
